FAERS Safety Report 24412572 (Version 2)
Quarter: 2025Q1

REPORT INFORMATION
  Report Type: Spontaneous
  Country: FR (occurrence: FR)
  Receive Date: 20241008
  Receipt Date: 20250102
  Transmission Date: 20250409
  Serious: Yes (Hospitalization, Other)
  Sender: BRISTOL-MYERS SQUIBB COMPANY
  Company Number: FR-BRISTOL-MYERS SQUIBB COMPANY-2024-155018

PATIENT
  Age: 60 Year
  Sex: Male

DRUGS (3)
  1. NIVOLUMAB [Suspect]
     Active Substance: NIVOLUMAB
     Indication: Renal cancer
  2. NIVOLUMAB [Suspect]
     Active Substance: NIVOLUMAB
  3. IPILIMUMAB [Suspect]
     Active Substance: IPILIMUMAB
     Indication: Renal cancer

REACTIONS (6)
  - Abdominal pain [Unknown]
  - Pancreatitis [Unknown]
  - Lipase increased [Unknown]
  - General physical health deterioration [Unknown]
  - Nasopharyngitis [Unknown]
  - Abdominal rigidity [Unknown]

NARRATIVE: CASE EVENT DATE: 20240901
